FAERS Safety Report 12115027 (Version 1)
Quarter: 2016Q1

REPORT INFORMATION
  Report Type: Spontaneous
  Country: US (occurrence: None)
  Receive Date: 20160224
  Receipt Date: 20160224
  Transmission Date: 20160526
  Serious: No
  Sender: FDA-Public Use
  Company Number: None

PATIENT
  Age: 76 Year
  Sex: Female
  Weight: 78.93 kg

DRUGS (8)
  1. METFORMIN [Concomitant]
     Active Substance: METFORMIN HYDROCHLORIDE
  2. OXYBUTYNIN [Concomitant]
     Active Substance: OXYBUTYNIN
  3. LOSARTIN [Concomitant]
     Active Substance: LOSARTAN
  4. VITAMIN D3 [Concomitant]
     Active Substance: CHOLECALCIFEROL
  5. CRANBERRY CAPSULES [Concomitant]
  6. FLUCONAZOLE 150 MG DR. REDDY^S LABORATORIES [Suspect]
     Active Substance: FLUCONAZOLE
     Indication: FUNGAL INFECTION
     Dosage: 150MG 1 PILL ONCE DAILY BY MOUTH
     Route: 048
     Dates: start: 20160218, end: 20160218
  7. LISINOPRIL. [Concomitant]
     Active Substance: LISINOPRIL
  8. MULTI-VITAMIN [Concomitant]
     Active Substance: .ALPHA.-TOCOPHEROL ACETATE, DL-\ASCORBIC ACID\CYANOCOBALAMIN\FLUORIDE ION\FOLIC ACID\NIACIN\PYRIDOXINE\RIBOFLAVIN\THIAMINE\VITAMIN A\VITAMIN D

REACTIONS (5)
  - Scar [None]
  - Product formulation issue [None]
  - Urticaria [None]
  - Blister [None]
  - Product label issue [None]

NARRATIVE: CASE EVENT DATE: 20160219
